FAERS Safety Report 10631418 (Version 2)
Quarter: 2014Q4

REPORT INFORMATION
  Report Type: Spontaneous
  Country: US (occurrence: US)
  Receive Date: 20141205
  Receipt Date: 20141205
  Transmission Date: 20150529
  Serious: No
  Sender: FDA-Public Use
  Company Number: US-BRISTOL-MYERS SQUIBB COMPANY-21004031

PATIENT
  Age: 54 Year
  Sex: Male

DRUGS (14)
  1. TUMS [Concomitant]
     Active Substance: CALCIUM CARBONATE
     Dosage: CHEWABLE 500MG
  2. HYDROCODONE, ACETAMINOPHEN [Concomitant]
     Active Substance: ACETAMINOPHEN\HYDROCODONE BITARTRATE
     Dosage: TABLETS 10-300MG
  3. METHOTREXATE SODIUM INJ [Concomitant]
     Active Substance: METHOTREXATE SODIUM
     Dosage: 200/8ML
  4. FISH OIL [Concomitant]
     Active Substance: FISH OIL
     Dosage: CAPSULE 1000MG
  5. FOLIC ACID. [Concomitant]
     Active Substance: FOLIC ACID
     Dosage: TABLET
  6. ABATACEPT SUBQ INJECTION 125MG/ML [Suspect]
     Active Substance: ABATACEPT
     Dosage: 1DF: 125MG/ML
     Route: 058
  7. GABAPENTIN. [Concomitant]
     Active Substance: GABAPENTIN
     Dosage: CAPSULE 300MG
  8. MULTIVITAMIN [Concomitant]
     Active Substance: VITAMINS
     Dosage: CAPSULE
  9. TYLENOL [Concomitant]
     Active Substance: ACETAMINOPHEN
     Dosage: TABLET 500MG
  10. MELOXICAM. [Concomitant]
     Active Substance: MELOXICAM
     Dosage: SUSPENSION 7.5/5ML
  11. MORPHINE SULFATE. [Concomitant]
     Active Substance: MORPHINE SULFATE
     Dosage: TABLET 10MG
  12. PREDNISONE. [Concomitant]
     Active Substance: PREDNISONE
     Dosage: TABLETS 10MG
  13. TYLENOL PM [Concomitant]
     Active Substance: ACETAMINOPHEN\DIPHENHYDRAMINE
     Dosage: TABLET
  14. VITAMIN D3 [Concomitant]
     Active Substance: CHOLECALCIFEROL
     Dosage: CAPSULE 10000 UNIT

REACTIONS (1)
  - Adverse event [Unknown]
